FAERS Safety Report 14821253 (Version 2)
Quarter: 2018Q2

REPORT INFORMATION
  Report Type: Report from Study
  Country: FR (occurrence: FR)
  Receive Date: 20180427
  Receipt Date: 20180525
  Transmission Date: 20180711
  Serious: Yes (Hospitalization)
  Sender: FDA-Public Use
  Company Number: FR-ROCHE-2108464

PATIENT
  Age: 50 Year
  Sex: Female
  Weight: 49.5 kg

DRUGS (3)
  1. RO 6958688 (T-CELL BISPECIFIC MONOCLONAL ANTIBODY) [Suspect]
     Active Substance: INVESTIGATIONAL PRODUCT
     Indication: NEOPLASM MALIGNANT
     Dosage: MOST RECENT DOSE PRIOR TO SAE WAS ON 21/MAR/2018. THERAPY WAS INTERRUPTED IN RESPONSE TO SAE ON 11/A
     Route: 042
     Dates: start: 20180314, end: 20180423
  2. ATEZOLIZUMAB. [Suspect]
     Active Substance: ATEZOLIZUMAB
     Indication: NEOPLASM MALIGNANT
     Dosage: MOST RECENT DOSE PRIOR TO SAE WAS ON 14/MAR/2018.?PERMANENTLY DISCONTINUED ON 23/APR/2018
     Route: 042
     Dates: start: 20180314, end: 20180423
  3. SOLU-MEDROL [Concomitant]
     Active Substance: METHYLPREDNISOLONE SODIUM SUCCINATE
     Indication: COLITIS
     Route: 065
     Dates: start: 20180329

REACTIONS (1)
  - Peripheral ischaemia [Not Recovered/Not Resolved]

NARRATIVE: CASE EVENT DATE: 20180413
